FAERS Safety Report 8600906 (Version 5)
Quarter: 2012Q4

REPORT INFORMATION
  Report Type: Report from Study
  Country: PL (occurrence: PL)
  Receive Date: 20120606
  Receipt Date: 20120828
  Transmission Date: 20130627
  Serious: Yes (Life-Threatening, Hospitalization)
  Sender: FDA-Public Use
  Company Number: PL-SHIRE-ALL1-2012-02693

PATIENT
  Age: 15 Year
  Sex: Male

DRUGS (5)
  1. IDURSULFASE [Suspect]
     Indication: MUCOPOLYSACCHARIDOSIS II
     Dosage: UNK, 1x/week
     Route: 041
     Dates: start: 20090924, end: 201106
  2. LEVETIRACETAM [Concomitant]
     Indication: NERVOUS SYSTEM DISORDER
     Dosage: 375 mg, 2x/day:bid
     Route: 065
     Dates: start: 20100701
  3. TRIMEBUTINE [Concomitant]
     Indication: GASTROINTESTINAL DISORDER
     Dosage: UNK, Unknown
     Route: 065
     Dates: start: 20100701
  4. CILAZAPRIL [Concomitant]
     Indication: CARDIOVASCULAR DISORDER
     Dosage: 0.25 mg, 1x/day:qd
     Route: 048
     Dates: start: 20090916
  5. LAMOTRIGINE [Concomitant]
     Indication: NERVOUS SYSTEM DISORDER
     Dosage: 75 mg, 2x/day:bid
     Route: 065
     Dates: start: 20090916

REACTIONS (2)
  - Nephrolithiasis [Unknown]
  - Urinary tract infection [Unknown]
